FAERS Safety Report 22377000 (Version 1)
Quarter: 2023Q2

REPORT INFORMATION
  Report Type: Spontaneous
  Country: US (occurrence: US)
  Receive Date: 20230529
  Receipt Date: 20230529
  Transmission Date: 20230722
  Serious: No
  Sender: FDA-Public Use
  Company Number: US-AMGEN-USASP2023091547

PATIENT
  Sex: Female

DRUGS (1)
  1. AMJEVITA [Suspect]
     Active Substance: ADALIMUMAB-ATTO
     Indication: Crohn^s disease
     Dosage: 40 MILLIGRAM, ONCE A WEEK
     Route: 065
     Dates: start: 202303

REACTIONS (6)
  - Injury associated with device [Unknown]
  - Accidental exposure to product [Unknown]
  - Peripheral swelling [Unknown]
  - Hypoaesthesia [Unknown]
  - Off label use [Unknown]
  - Injection site haemorrhage [Recovered/Resolved]
